FAERS Safety Report 23043864 (Version 2)
Quarter: 2024Q4

REPORT INFORMATION
  Report Type: Report from Study
  Country: US (occurrence: US)
  Receive Date: 20231009
  Receipt Date: 20241007
  Transmission Date: 20250115
  Serious: Yes (Hospitalization, Other)
  Sender: NOVARTIS
  Company Number: US-002147023-NVSC2023US214431

PATIENT
  Age: 66 Year
  Sex: Female
  Weight: 122.9 kg

DRUGS (2)
  1. ENTRESTO [Suspect]
     Active Substance: SACUBITRIL\VALSARTAN
     Indication: Cardiac failure congestive
     Dosage: UNK, UNKNOWN
     Route: 065
  2. ENTRESTO [Suspect]
     Active Substance: SACUBITRIL\VALSARTAN
     Dosage: 49-51 MG
     Route: 048
     Dates: start: 20210109

REACTIONS (3)
  - Cerebrovascular accident [Recovered/Resolved with Sequelae]
  - Dysarthria [Unknown]
  - Aphasia [Unknown]

NARRATIVE: CASE EVENT DATE: 20230809
